FAERS Safety Report 24887444 (Version 2)
Quarter: 2025Q1

REPORT INFORMATION
  Report Type: Spontaneous
  Country: BR (occurrence: BR)
  Receive Date: 20250127
  Receipt Date: 20250207
  Transmission Date: 20250409
  Serious: Yes (Other)
  Sender: NOVO NORDISK
  Company Number: BR-NOVOPROD-1351990

PATIENT
  Age: 791 Month
  Sex: Female

DRUGS (2)
  1. OZEMPIC [Suspect]
     Active Substance: SEMAGLUTIDE
     Indication: Type 2 diabetes mellitus
     Dosage: 30 DF, QW(CLICKS/WEEK)
  2. OZEMPIC [Suspect]
     Active Substance: SEMAGLUTIDE
     Dosage: 53 DF, QW(CLICKS/WEEK)
     Dates: end: 202408

REACTIONS (2)
  - Umbilical hernia [Unknown]
  - Wrong technique in product usage process [Recovered/Resolved]
